FAERS Safety Report 5528620-1 (Version None)
Quarter: 2007Q4

REPORT INFORMATION
  Report Type: 
  Country: None (occurrence: None)
  Receive Date: 20071109
  Receipt Date: 20070312
  Transmission Date: 20080405
  Serious: Yes (Other)
  Sender: FDA-Public Use
  Company Number: PHEH2007US03060

PATIENT
  Age: 72 Year
  Sex: Female

DRUGS (4)
  1. ESTRADERM [Suspect]
     Indication: MENOPAUSE
     Dosage: 1 MG/DAY, TRANSDERMAL
     Route: 062
     Dates: start: 19880308
  2. PREMARIN [Suspect]
     Indication: MENOPAUSE
     Dosage: 0.625 MG, ORAL
     Route: 047
     Dates: start: 19871201, end: 19990101
  3. PREMPRO [Suspect]
     Indication: MENOPAUSE
     Dosage: 0.625/2.5,  ORAL
     Route: 048
     Dates: start: 19981001, end: 20010501
  4. PROVERA [Suspect]
     Indication: HORMONE REPLACEMENT THERAPY
     Dosage: 2.5 MG, ORAL
     Route: 048
     Dates: start: 19880301, end: 19990701

REACTIONS (3)
  - BIOPSY BREAST ABNORMAL [None]
  - BREAST CANCER [None]
  - MAMMOGRAM ABNORMAL [None]
